FAERS Safety Report 13066907 (Version 1)
Quarter: 2016Q4

REPORT INFORMATION
  Report Type: Spontaneous
  Country: TW (occurrence: TW)
  Receive Date: 20161227
  Receipt Date: 20161227
  Transmission Date: 20170207
  Serious: Yes (Other)
  Sender: FDA-Public Use
  Company Number: TW-MYLANLABS-2016M1044199

PATIENT

DRUGS (14)
  1. CLOZAPINE. [Interacting]
     Active Substance: CLOZAPINE
     Indication: BIPOLAR DISORDER
     Dosage: UNK
     Dates: start: 20110509
  2. LORAZEPAM. [Interacting]
     Active Substance: LORAZEPAM
     Indication: INSOMNIA
  3. FLURAZEPAM [Interacting]
     Active Substance: FLURAZEPAM\FLURAZEPAM HYDROCHLORIDE
     Indication: BIPOLAR DISORDER
     Dosage: 30 MG, HS
  4. VALPROIC ACID. [Suspect]
     Active Substance: VALPROIC ACID
     Indication: BIPOLAR DISORDER
     Dosage: 500 MG, QD
     Dates: start: 20160830
  5. LITHIUM. [Interacting]
     Active Substance: LITHIUM
     Indication: INSOMNIA
  6. LORAZEPAM. [Interacting]
     Active Substance: LORAZEPAM
     Indication: BIPOLAR DISORDER
  7. LITHIUM. [Interacting]
     Active Substance: LITHIUM
     Indication: PSYCHOTIC BEHAVIOUR
  8. LORAZEPAM. [Interacting]
     Active Substance: LORAZEPAM
     Indication: PSYCHOTIC BEHAVIOUR
     Dosage: 1 MG, HS
  9. FLURAZEPAM [Interacting]
     Active Substance: FLURAZEPAM\FLURAZEPAM HYDROCHLORIDE
     Indication: INSOMNIA
  10. LITHIUM. [Interacting]
     Active Substance: LITHIUM
     Indication: BIPOLAR DISORDER
     Dosage: 300 MG, QD
  11. ZOLPIDEM [Concomitant]
     Active Substance: ZOLPIDEM\ZOLPIDEM TARTRATE
     Indication: INSOMNIA
     Dosage: 10 MG, HS
  12. VALPROIC ACID. [Suspect]
     Active Substance: VALPROIC ACID
     Indication: PSYCHOTIC BEHAVIOUR
     Dosage: 500 MG, HS
  13. CLOZAPINE. [Interacting]
     Active Substance: CLOZAPINE
     Indication: INSOMNIA
     Dosage: 25 MG
  14. CLOZAPINE. [Interacting]
     Active Substance: CLOZAPINE
     Indication: PSYCHOTIC BEHAVIOUR
     Dosage: 100 MG, UNK
     Dates: start: 20130830

REACTIONS (7)
  - White blood cell count increased [Unknown]
  - Pyrexia [Unknown]
  - Aspartate aminotransferase increased [Unknown]
  - Alanine aminotransferase increased [Unknown]
  - Pneumonia aspiration [Unknown]
  - Product use issue [Unknown]
  - Labelled drug-drug interaction medication error [Unknown]

NARRATIVE: CASE EVENT DATE: 20130902
